FAERS Safety Report 5028497-7 (Version None)
Quarter: 2006Q2

REPORT INFORMATION
  Report Type: 
  Country: None (occurrence: None)
  Receive Date: 20060617
  Receipt Date: 20060606
  Transmission Date: 20061013
  Serious: Yes (Hospitalization, Other)
  Sender: FDA-Public Use
  Company Number: JP-ABBOTT-06P-087-0335161-00

PATIENT
  Age: 31 Year
  Sex: Male

DRUGS (12)
  1. CYCLOSPORINE [Suspect]
     Indication: IMMUNOSUPPRESSION
     Dates: end: 20040730
  2. CYCLOSPORINE [Suspect]
  3. PREDNISOLONE [Suspect]
     Indication: GRAFT VERSUS HOST DISEASE
  4. PREDNISOLONE [Suspect]
  5. PREDNISOLONE [Suspect]
  6. PREDNISOLONE [Suspect]
  7. PREDNISOLONE [Suspect]
  8. PHENYTOIN [Concomitant]
     Indication: DRUG USE FOR UNKNOWN INDICATION
  9. LANSOPRAZOLE [Concomitant]
     Indication: DRUG USE FOR UNKNOWN INDICATION
  10. RANITIDINE [Concomitant]
     Indication: DRUG USE FOR UNKNOWN INDICATION
  11. URSODEOXYCHOLIC ACID [Concomitant]
     Indication: DRUG USE FOR UNKNOWN INDICATION
  12. GLYCYRRHIZIC ACID, AMMONIUM SALT [Concomitant]
     Indication: DRUG USE FOR UNKNOWN INDICATION

REACTIONS (6)
  - GRAFT VERSUS HOST DISEASE [None]
  - HEPATITIS [None]
  - HUMAN HERPESVIRUS 6 INFECTION [None]
  - LEUKOENCEPHALOPATHY [None]
  - PNEUMONIA [None]
  - THERAPY NON-RESPONDER [None]
